FAERS Safety Report 6408242-0 (Version None)
Quarter: 2009Q4

REPORT INFORMATION
  Report Type: 
  Country: None (occurrence: None)
  Receive Date: 20091021
  Receipt Date: 20091020
  Transmission Date: 20100525
  Serious: Yes (Other)
  Sender: FDA-Public Use
  Company Number: US-PFIZER INC-2009204063

PATIENT
  Sex: Female
  Weight: 53.5 kg

DRUGS (3)
  1. LIPITOR [Suspect]
     Indication: BLOOD CHOLESTEROL INCREASED
     Dosage: 10 MG, 1X/DAY
     Route: 048
     Dates: start: 20040101
  2. NEXIUM [Concomitant]
     Indication: GASTRIC DISORDER
     Dosage: UNK
  3. VALSARTAN [Concomitant]
     Indication: HEART VALVE INCOMPETENCE
     Dosage: UNK

REACTIONS (3)
  - BLOOD CHOLESTEROL INCREASED [None]
  - CORONARY ARTERY DISEASE [None]
  - MITRAL VALVE INCOMPETENCE [None]
